FAERS Safety Report 10305024 (Version 1)
Quarter: 2014Q3

REPORT INFORMATION
  Report Type: Spontaneous
  Country: US (occurrence: None)
  Receive Date: 20140711
  Receipt Date: 20140711
  Transmission Date: 20150326
  Serious: Yes (Other)
  Sender: FDA-Public Use
  Company Number: None

PATIENT

DRUGS (1)
  1. ISOVUE-M [Suspect]
     Active Substance: IOPAMIDOL

REACTIONS (2)
  - Back pain [None]
  - Headache [None]
